FAERS Safety Report 7335037-6 (Version None)
Quarter: 2011Q1

REPORT INFORMATION
  Report Type: 
  Country: None (occurrence: None)
  Receive Date: 20110302
  Receipt Date: 20110302
  Transmission Date: 20110831
  Serious: Yes (Other)
  Sender: FDA-Public Use
  Company Number: None

PATIENT
  Age: 83 Year
  Sex: Male
  Weight: 70.3075 kg

DRUGS (1)
  1. TUSSIN DM - BY CARE ONE [Suspect]
     Indication: SINUSITIS
     Dosage: 2 TSPS EVERY 4 HRS ORAL
     Route: 048
     Dates: start: 20110211, end: 20110214

REACTIONS (3)
  - BLOOD PRESSURE INCREASED [None]
  - SINUSITIS [None]
  - NASOPHARYNGITIS [None]
